FAERS Safety Report 13647993 (Version 1)
Quarter: 2017Q2

REPORT INFORMATION
  Report Type: Report from Study
  Country: US (occurrence: US)
  Receive Date: 20170613
  Receipt Date: 20170613
  Transmission Date: 20170830
  Serious: Yes (Hospitalization, Other)
  Sender: FDA-Public Use
  Company Number: US-PROMETHEUS LABORATORIES-2017PL000055

PATIENT
  Age: 41 Year
  Sex: Male

DRUGS (3)
  1. PROLEUKIN [Suspect]
     Active Substance: ALDESLEUKIN
     Dosage: 600 KIU, EVERY 8 HOURS
     Route: 042
     Dates: start: 20150209, end: 20150211
  2. PROLEUKIN [Suspect]
     Active Substance: ALDESLEUKIN
     Dosage: 600 KIU, EVERY 8 HOURS
     Route: 042
     Dates: start: 20150420, end: 20150421
  3. PROLEUKIN [Suspect]
     Active Substance: ALDESLEUKIN
     Indication: MALIGNANT MELANOMA
     Dosage: 600 KIU, EVERY 8 HOURS
     Route: 042
     Dates: start: 20150126, end: 20150130

REACTIONS (9)
  - Diarrhoea [Recovered/Resolved]
  - Metabolic acidosis [Recovered/Resolved]
  - Rhabdomyolysis [Recovered/Resolved]
  - Rhabdomyolysis [Not Recovered/Not Resolved]
  - Acute kidney injury [Recovered/Resolved]
  - Blood bilirubin increased [Not Recovered/Not Resolved]
  - Drug ineffective [Not Recovered/Not Resolved]
  - Vitiligo [Not Recovered/Not Resolved]
  - Thrombocytopenia [Recovered/Resolved]

NARRATIVE: CASE EVENT DATE: 20150128
